FAERS Safety Report 9495985 (Version 2)
Quarter: 2013Q3

REPORT INFORMATION
  Report Type: Spontaneous
  Country: US (occurrence: US)
  Receive Date: 20130904
  Receipt Date: 20130904
  Transmission Date: 20140515
  Serious: Yes (Disabling, Other)
  Sender: FDA-Public Use
  Company Number: US-009507513-2012SP023336

PATIENT
  Age: 47 Year
  Sex: Male
  Weight: 83.91 kg

DRUGS (1)
  1. VICTRELIS [Suspect]
     Indication: HEPATITIS C
     Dosage: 4X200MG, EVERY 7-9 HOURS,PO
     Route: 048
     Dates: start: 20120107, end: 20120207

REACTIONS (2)
  - Viral load increased [Unknown]
  - Drug ineffective [Unknown]
